FAERS Safety Report 18991870 (Version 3)
Quarter: 2022Q1

REPORT INFORMATION
  Report Type: Spontaneous
  Country: CA (occurrence: CA)
  Receive Date: 20210310
  Receipt Date: 20220214
  Transmission Date: 20220423
  Serious: Yes (Other)
  Sender: FDA-Public Use
  Company Number: CA-BOEHRINGERINGELHEIM-2021-BI-087671

PATIENT
  Age: 58 Year
  Sex: Female
  Weight: 52 kg

DRUGS (19)
  1. MICARDIS [Suspect]
     Active Substance: TELMISARTAN
     Indication: Product used for unknown indication
  2. ACETAMINOPHEN [Suspect]
     Active Substance: ACETAMINOPHEN
     Indication: Product used for unknown indication
  3. BACLOFEN [Suspect]
     Active Substance: BACLOFEN
     Indication: Product used for unknown indication
  4. CYMBALTA [Suspect]
     Active Substance: DULOXETINE HYDROCHLORIDE
     Indication: Product used for unknown indication
  5. GLICLAZIDE [Suspect]
     Active Substance: GLICLAZIDE
     Indication: Product used for unknown indication
  6. JANUVIA [Suspect]
     Active Substance: SITAGLIPTIN PHOSPHATE
     Indication: Product used for unknown indication
  7. LEFLUNOMIDE [Suspect]
     Active Substance: LEFLUNOMIDE
     Indication: Product used for unknown indication
  8. LEUCOVORIN [Suspect]
     Active Substance: LEUCOVORIN
     Indication: Product used for unknown indication
  9. METFORMIN HYDROCHLORIDE [Suspect]
     Active Substance: METFORMIN HYDROCHLORIDE
     Indication: Product used for unknown indication
  10. ROSUVASTATIN CALCIUM [Suspect]
     Active Substance: ROSUVASTATIN CALCIUM
     Indication: Product used for unknown indication
     Route: 048
  11. ROSUVASTATIN CALCIUM [Suspect]
     Active Substance: ROSUVASTATIN CALCIUM
     Route: 065
  12. PANTOPRAZOLE MAGNESIUM [Suspect]
     Active Substance: PANTOPRAZOLE MAGNESIUM
     Indication: Product used for unknown indication
     Dosage: TABLET (ENTERIC COATED TABLET)
     Route: 048
  13. TYLENOL [Suspect]
     Active Substance: ACETAMINOPHEN
     Indication: Product used for unknown indication
     Dosage: 1.0 DOSAGE FORMS
  14. TYLENOL [Suspect]
     Active Substance: ACETAMINOPHEN
     Route: 065
  15. LEUCOVORIN [Suspect]
     Active Substance: LEUCOVORIN
     Indication: Product used for unknown indication
  16. METFORMIN [Suspect]
     Active Substance: METFORMIN HYDROCHLORIDE
     Indication: Product used for unknown indication
  17. LEUCOVORIN CALCIUM [Suspect]
     Active Substance: LEUCOVORIN CALCIUM
     Indication: Product used for unknown indication
  18. DENOSUMAB [Concomitant]
     Active Substance: DENOSUMAB
     Indication: Product used for unknown indication
     Dosage: SOLUTION SUBCUTANEOUS
     Route: 058
  19. DENOSUMAB [Concomitant]
     Active Substance: DENOSUMAB
     Route: 065

REACTIONS (22)
  - Blood pressure systolic increased [Unknown]
  - Bursitis [Unknown]
  - Dizziness [Unknown]
  - Drug ineffective [Unknown]
  - Haemoglobin increased [Unknown]
  - Hand deformity [Unknown]
  - Hypokinesia [Unknown]
  - Joint noise [Unknown]
  - Joint swelling [Unknown]
  - Muscle atrophy [Unknown]
  - Musculoskeletal pain [Unknown]
  - Myalgia [Unknown]
  - Nausea [Unknown]
  - Osteoarthritis [Unknown]
  - Osteoporosis [Unknown]
  - Pain [Unknown]
  - Pain in extremity [Unknown]
  - Rheumatoid arthritis [Unknown]
  - Rotator cuff syndrome [Unknown]
  - Scoliosis [Unknown]
  - Tendonitis [Unknown]
  - Arthralgia [Unknown]
